FAERS Safety Report 20730710 (Version 2)
Quarter: 2024Q2

REPORT INFORMATION
  Report Type: Spontaneous
  Country: US (occurrence: US)
  Receive Date: 20220420
  Receipt Date: 20240415
  Transmission Date: 20240716
  Serious: Yes (Other)
  Sender: FDA-Public Use
  Company Number: US-ASTELLAS-2022US004273

PATIENT
  Age: 79 Year
  Sex: Male

DRUGS (8)
  1. LEXISCAN [Suspect]
     Active Substance: REGADENOSON
     Indication: Chest pain
     Dosage: 0.4 MG, UNKNOWN FREQ. (10 SECS)
     Route: 042
     Dates: start: 20220127, end: 20220127
  2. LEXISCAN [Suspect]
     Active Substance: REGADENOSON
     Indication: Chest pain
     Dosage: 0.4 MG, UNKNOWN FREQ. (10 SECS)
     Route: 042
     Dates: start: 20220127, end: 20220127
  3. LEXISCAN [Suspect]
     Active Substance: REGADENOSON
     Indication: Chest pain
     Dosage: 0.4 MG, UNKNOWN FREQ. (10 SECS)
     Route: 042
     Dates: start: 20220127, end: 20220127
  4. LEXISCAN [Suspect]
     Active Substance: REGADENOSON
     Indication: Chest pain
     Dosage: 0.4 MG, UNKNOWN FREQ. (10 SECS)
     Route: 042
     Dates: start: 20220127, end: 20220127
  5. LEXISCAN [Suspect]
     Active Substance: REGADENOSON
     Indication: Scan myocardial perfusion
  6. LEXISCAN [Suspect]
     Active Substance: REGADENOSON
     Indication: Scan myocardial perfusion
  7. LEXISCAN [Suspect]
     Active Substance: REGADENOSON
     Indication: Scan myocardial perfusion
  8. LEXISCAN [Suspect]
     Active Substance: REGADENOSON
     Indication: Scan myocardial perfusion

REACTIONS (1)
  - Atrioventricular block complete [Recovered/Resolved]

NARRATIVE: CASE EVENT DATE: 20220127
